FAERS Safety Report 19255188 (Version 1)
Quarter: 2021Q2

REPORT INFORMATION
  Report Type: Spontaneous
  Country: CN (occurrence: CN)
  Receive Date: 20210513
  Receipt Date: 20210513
  Transmission Date: 20210717
  Serious: Yes (Hospitalization)
  Sender: FDA-Public Use
  Company Number: CN-IGSA-BIG0014515

PATIENT
  Age: 83 Year
  Sex: Male

DRUGS (12)
  1. TAMSULOSIN HYDROCHLORIDE. [Concomitant]
     Active Substance: TAMSULOSIN HYDROCHLORIDE
     Indication: BENIGN PROSTATIC HYPERPLASIA
     Dosage: 0.20 MILLIGRAM, QD
     Route: 048
     Dates: start: 20210326, end: 20210419
  2. FINASTERIDE. [Concomitant]
     Active Substance: FINASTERIDE
     Indication: BENIGN PROSTATIC HYPERPLASIA
     Dosage: 5 MILLIGRAM, QD
     Route: 048
     Dates: start: 20210326, end: 20210419
  3. ALUMINIUM HYDROXIDE GEL;MAGNESIUM CARBONATE [Concomitant]
     Active Substance: ALUMINUM HYDROXIDE\MAGNESIUM CARBONATE
     Indication: ANTACID THERAPY
     Dosage: 0.50 GRAM, TID
     Route: 048
     Dates: start: 20210326, end: 20210419
  4. ALBUTEIN [Suspect]
     Active Substance: ALBUMIN HUMAN
     Indication: HYPOALBUMINAEMIA
     Dosage: 10 GRAM, QD
     Route: 041
     Dates: start: 20210330, end: 20210403
  5. METOPROLOL SUCCINATE. [Concomitant]
     Active Substance: METOPROLOL SUCCINATE
     Indication: HEART RATE DECREASED
     Dosage: 23.75 MILLIGRAM, QD
     Route: 048
     Dates: start: 20210329, end: 20210419
  6. ATORVASTATIN CALCIUM. [Concomitant]
     Active Substance: ATORVASTATIN CALCIUM
     Indication: ATHEROSCLEROSIS PROPHYLAXIS
     Dosage: 10 MILLIGRAM, QD
     Route: 048
     Dates: start: 20210326, end: 20210419
  7. ALBUTEIN [Suspect]
     Active Substance: ALBUMIN HUMAN
     Indication: ASTHENIA
  8. MEROPENEM. [Suspect]
     Active Substance: MEROPENEM
     Indication: PNEUMONIA
     Dosage: 1 GRAM, BID
     Route: 041
     Dates: start: 20210327, end: 20210401
  9. AMIODARONE HYDROCHLORIDE. [Concomitant]
     Active Substance: AMIODARONE HYDROCHLORIDE
     Indication: VENTRICULAR ARRHYTHMIA
     Dosage: 0.20 GRAM, QD
     Route: 048
     Dates: start: 20210329, end: 20210419
  10. DABIGATRAN ETEXILATE [Concomitant]
     Active Substance: DABIGATRAN ETEXILATE
     Indication: ANTICOAGULANT THERAPY
     Dosage: 110 MILLIGRAM, BID
     Route: 048
     Dates: start: 20210226, end: 20210419
  11. PANTOPRAZOLE SODIUM. [Concomitant]
     Active Substance: PANTOPRAZOLE SODIUM
     Indication: ANTACID THERAPY
     Dosage: 40 UNK, QD
     Route: 048
     Dates: start: 20210326, end: 20210419
  12. MOXIFLOXACIN. [Concomitant]
     Active Substance: MOXIFLOXACIN
     Indication: ANTI-INFECTIVE THERAPY
     Dosage: 0.4 GRAM, QD
     Route: 042
     Dates: start: 2021

REACTIONS (5)
  - Irritability [Recovering/Resolving]
  - Screaming [Recovering/Resolving]
  - Mental status changes [Recovering/Resolving]
  - Restlessness [Recovering/Resolving]
  - Logorrhoea [Recovering/Resolving]

NARRATIVE: CASE EVENT DATE: 20210401
